FAERS Safety Report 8431671 (Version 7)
Quarter: 2012Q4

REPORT INFORMATION
  Report Type: 
  Country: US (occurrence: US)
  Receive Date: 20120228
  Receipt Date: 20120919
  Transmission Date: 20130627
  Serious: Yes (Hospitalization, Disabling, Other)
  Sender: FDA-Public Use
  Company Number: US-009507513-1202USA03897

PATIENT

DRUGS (8)
  1. FOSAMAX [Suspect]
     Indication: OSTEOPOROSIS
     Dosage: 70 mg, QW
     Route: 048
     Dates: start: 20010813, end: 20060725
  2. FOSAMAX [Suspect]
     Dosage: 40 mg, UNK
     Route: 048
     Dates: start: 20090917, end: 20120604
  3. FOSAMAX [Suspect]
     Indication: OSTEOPOROSIS
     Dosage: 70 mg, UNK
     Route: 048
     Dates: start: 20100913, end: 201109
  4. FOSAMAX PLUS D [Suspect]
     Indication: OSTEOPOROSIS
     Dosage: 70mg/2800
     Route: 048
     Dates: start: 20061011, end: 20090807
  5. FOSAMAX [Suspect]
     Indication: OSTEOPOROSIS
     Route: 048
     Dates: start: 20091023, end: 20100611
  6. CENTRUM (MINERALS (UNSPECIFIED) (+) VITAMINS (UNSPECIFIED)) [Concomitant]
     Dosage: UNK, qd
     Route: 048
     Dates: start: 1982
  7. CALCIUM (UNSPECIFIED) [Concomitant]
     Dosage: 600 mg, bid
     Route: 048
     Dates: start: 1992
  8. CYANOCOBALAMIN [Concomitant]
     Dates: start: 1992

REACTIONS (25)
  - Femur fracture [Recovered/Resolved]
  - Open reduction of fracture [Recovered/Resolved]
  - Nasal congestion [Unknown]
  - Hypercholesterolaemia [Unknown]
  - Myocardial ischaemia [Unknown]
  - Iron deficiency anaemia [Unknown]
  - QRS axis abnormal [Unknown]
  - Tricuspid valve incompetence [Unknown]
  - Mitral valve incompetence [Unknown]
  - Blood glucose increased [Unknown]
  - Haemorrhagic anaemia [Unknown]
  - Postoperative fever [Unknown]
  - Drug hypersensitivity [Unknown]
  - Constipation [Unknown]
  - Device failure [Unknown]
  - Fracture delayed union [Unknown]
  - Fall [Unknown]
  - Tooth disorder [Unknown]
  - Low turnover osteopathy [Unknown]
  - Pelvic pain [Unknown]
  - Radius fracture [Unknown]
  - Gait disturbance [Unknown]
  - Back pain [Unknown]
  - Arthralgia [Unknown]
  - Ulna fracture [Unknown]
